FAERS Safety Report 8544053-8 (Version None)
Quarter: 2012Q3

REPORT INFORMATION
  Report Type: 
  Country: None (occurrence: None)
  Receive Date: 20120719
  Receipt Date: 20120719
  Transmission Date: 20120928
  Serious: Yes (Disabling, Other)
  Sender: FDA-Public Use
  Company Number: None

PATIENT
  Sex: Female

DRUGS (2)
  1. WELLBUTRIN [Suspect]
     Indication: DEPRESSION
     Dosage: ONCE A DAY PO
     Route: 048
  2. WELLBUTRIN [Suspect]
     Indication: ANXIETY
     Dosage: ONCE A DAY PO
     Route: 048

REACTIONS (1)
  - SKIN LESION [None]
